FAERS Safety Report 4924497-3 (Version None)
Quarter: 2006Q1

REPORT INFORMATION
  Report Type: 
  Country: None (occurrence: None)
  Receive Date: 20060227
  Receipt Date: 20060222
  Transmission Date: 20060701
  Serious: Yes (Other)
  Sender: FDA-Public Use
  Company Number: ZA-BRISTOL-MYERS SQUIBB COMPANY-13291414

PATIENT
  Age: 26 Year
  Sex: Female

DRUGS (5)
  1. STOCRIN [Suspect]
     Route: 048
     Dates: start: 20050203, end: 20060202
  2. STAVUDINE [Suspect]
     Route: 048
     Dates: start: 20050203, end: 20060202
  3. LAMIVUDINE [Suspect]
     Route: 048
     Dates: start: 20050203, end: 20060202
  4. VITAMINS [Concomitant]
     Dates: start: 20040701
  5. BACTRIM [Concomitant]
     Dates: start: 20040701

REACTIONS (2)
  - ABDOMINAL PAIN [None]
  - OEDEMA PERIPHERAL [None]
